FAERS Safety Report 5677907-0 (Version None)
Quarter: 2008Q1

REPORT INFORMATION
  Report Type: 
  Country: None (occurrence: None)
  Receive Date: 20080319
  Receipt Date: 20080306
  Transmission Date: 20080703
  Serious: Yes (Hospitalization)
  Sender: FDA-Public Use
  Company Number: 430005M08USA

PATIENT
  Age: 55 Year
  Sex: Female
  Weight: 63 kg

DRUGS (4)
  1. NOVANTRONE [Suspect]
     Indication: ACUTE MYELOID LEUKAEMIA
     Dates: start: 20080208, end: 20080212
  2. CEP-701 (INVESTIGATIONAL DRUG) [Suspect]
     Dosage: 80 MG, 2 IN 1 DAYS, ORAL
     Route: 048
     Dates: start: 20080214
  3. ETOPOSIDE [Suspect]
     Dates: start: 20080208, end: 20080212
  4. CYTARABINE [Suspect]
     Dates: start: 20080208, end: 20080212

REACTIONS (1)
  - FEBRILE NEUTROPENIA [None]
